FAERS Safety Report 9408146 (Version 1)
Quarter: 2013Q3

REPORT INFORMATION
  Report Type: Spontaneous
  Country: JP (occurrence: JP)
  Receive Date: 20130718
  Receipt Date: 20130718
  Transmission Date: 20140515
  Serious: Yes (Hospitalization)
  Sender: FDA-Public Use
  Company Number: JP-PFIZER INC-2013194773

PATIENT
  Age: 46 Year
  Sex: Female

DRUGS (11)
  1. HALOPERIDOL [Suspect]
     Indication: SCHIZOPHRENIA
     Dosage: 3 MG, 1X/DAY
  2. BENIDIPINE [Concomitant]
     Dosage: 4 MG, 1X/DAY
  3. TIZANIDINE [Concomitant]
     Dosage: 2 MG, 3X/DAY
  4. FLUDIAZEPAM [Concomitant]
     Dosage: 0.5 G, 3X/DAY
  5. ASPIRIN ^BAYER^ [Concomitant]
     Dosage: 330 MG, 1X/DAY
  6. SENNOSIDE A [Concomitant]
     Dosage: 48 MG, 1X/DAY
  7. CHLORPROMAZINE [Concomitant]
     Dosage: 250 MG, 1X/DAY
  8. PROMETHAZINE [Concomitant]
     Dosage: 50 MG, 1X/DAY
  9. BIPERIDEN [Concomitant]
     Dosage: 2 MG, 1X/DAY
  10. FLUNITRAZEPAM [Concomitant]
     Dosage: 4 MG, 1X/DAY
  11. DIAZEPAM [Concomitant]
     Dosage: 10 MG, 1X/DAY

REACTIONS (5)
  - Long QT syndrome [Recovering/Resolving]
  - Torsade de pointes [Recovering/Resolving]
  - Ventricular fibrillation [Recovering/Resolving]
  - Altered state of consciousness [Recovered/Resolved]
  - Water intoxication [Recovering/Resolving]
